FAERS Safety Report 14312018 (Version 2)
Quarter: 2018Q1

REPORT INFORMATION
  Report Type: Report from Study
  Country: CZ (occurrence: CZ)
  Receive Date: 20171221
  Receipt Date: 20180214
  Transmission Date: 20180509
  Serious: Yes (Hospitalization, Other)
  Sender: FDA-Public Use
  Company Number: CZ-IPSEN BIOPHARMACEUTICALS, INC.-2017-16046

PATIENT
  Age: 72 Year
  Sex: Male

DRUGS (10)
  1. HELICID [Concomitant]
     Active Substance: OMEPRAZOLE
     Dates: start: 20150908, end: 20150925
  2. AFLIBERCEPT [Suspect]
     Active Substance: AFLIBERCEPT
     Route: 041
  3. IRINOTECAN LIPOSOME [Suspect]
     Active Substance: IRINOTECAN
     Indication: COLORECTAL CANCER METASTATIC
     Dosage: 275 MG
     Route: 041
     Dates: start: 20150908, end: 20150908
  4. 5-FU [Suspect]
     Active Substance: FLUOROURACIL
     Indication: COLORECTAL CANCER METASTATIC
     Dosage: 610 MG AND 3700 MG
     Route: 040
     Dates: start: 20150908, end: 20150908
  5. LEUCOVORIN. [Suspect]
     Active Substance: LEUCOVORIN
     Indication: COLORECTAL CANCER METASTATIC
     Route: 041
     Dates: start: 20150908, end: 20150908
  6. EMEND [Concomitant]
     Active Substance: APREPITANT
     Dates: start: 20150908, end: 20150927
  7. IRINOTECAN LIPOSOME [Suspect]
     Active Substance: IRINOTECAN
     Indication: OFF LABEL USE
  8. DEGAN [Concomitant]
     Active Substance: METOCLOPRAMIDE HYDROCHLORIDE
     Dates: start: 20150908, end: 20150925
  9. AFLIBERCEPT [Suspect]
     Active Substance: AFLIBERCEPT
     Indication: COLORECTAL CANCER METASTATIC
     Route: 041
     Dates: start: 20150908, end: 20150908
  10. MEGACE [Concomitant]
     Active Substance: MEGESTROL ACETATE
     Dates: start: 20150922

REACTIONS (3)
  - Hiccups [Recovered/Resolved]
  - Off label use [Unknown]
  - Haematuria [Recovered/Resolved]

NARRATIVE: CASE EVENT DATE: 20151009
